FAERS Safety Report 6203048-X (Version None)
Quarter: 2009Q2

REPORT INFORMATION
  Report Type: 
  Country: None (occurrence: None)
  Receive Date: 20090521
  Receipt Date: 20090521
  Transmission Date: 20091009
  Serious: Yes (Other)
  Sender: FDA-Public Use
  Company Number: None

PATIENT
  Age: 55 Year
  Sex: Female
  Weight: 77.1115 kg

DRUGS (11)
  1. LEVAQUIN [Suspect]
     Indication: PNEUMONIA
     Dosage: 500 MG  ONE TIME
     Dates: end: 20090512
  2. LEVAQUIN [Suspect]
     Indication: PULMONARY CONGESTION
     Dosage: 500 MG  ONE TIME
     Dates: end: 20090512
  3. PRISOLEC [Concomitant]
  4. DIAZEPAM [Concomitant]
  5. ACETAMINOPHEN [Concomitant]
  6. CLARITIN [Concomitant]
  7. IBUPROFEN [Concomitant]
  8. MULTI-VITAMIN [Concomitant]
  9. VITAMIN B-12 [Concomitant]
  10. ANTACID TABLETS [Concomitant]
  11. CALCIUM [Concomitant]

REACTIONS (6)
  - ASTHENIA [None]
  - BURNING SENSATION [None]
  - NERVE INJURY [None]
  - PAIN [None]
  - PARAESTHESIA [None]
  - TEMPERATURE INTOLERANCE [None]
